FAERS Safety Report 17183907 (Version 2)
Quarter: 2020Q1

REPORT INFORMATION
  Report Type: Report from Study
  Country: DE (occurrence: DE)
  Receive Date: 20191220
  Receipt Date: 20200203
  Transmission Date: 20200409
  Serious: No
  Sender: FDA-Public Use
  Company Number: DE-BAUSCH-BL-2019-065844

PATIENT
  Age: 31 Year
  Sex: Male
  Weight: 130 kg

DRUGS (2)
  1. LEVODOPA [Concomitant]
     Active Substance: LEVODOPA
     Indication: CEREBRAL PALSY
     Dosage: 100/125 MG
     Route: 048
     Dates: start: 20181101
  2. KYNTHEUM (BRODALUMAB) [Suspect]
     Active Substance: BRODALUMAB
     Indication: PSORIASIS
     Route: 058
     Dates: start: 20180523, end: 20191120

REACTIONS (1)
  - Hypovitaminosis [Recovered/Resolved]

NARRATIVE: CASE EVENT DATE: 201809
